FAERS Safety Report 25224476 (Version 1)
Quarter: 2025Q2

REPORT INFORMATION
  Report Type: Spontaneous
  Country: CN (occurrence: CN)
  Receive Date: 20250422
  Receipt Date: 20250422
  Transmission Date: 20250717
  Serious: Yes (Life-Threatening, Hospitalization, Other)
  Sender: SANOFI AVENTIS
  Company Number: CN-SA-2025SA113196

PATIENT
  Age: 45 Year
  Sex: Male
  Weight: 83 kg

DRUGS (6)
  1. CLOPIDOGREL BISULFATE [Suspect]
     Active Substance: CLOPIDOGREL BISULFATE
     Indication: Coronary artery disease
     Dosage: 75 MG, QD
     Route: 048
     Dates: start: 20250319, end: 20250401
  2. CLOPIDOGREL BISULFATE [Suspect]
     Active Substance: CLOPIDOGREL BISULFATE
     Indication: Cerebral infarction
  3. ASPIRIN [Suspect]
     Active Substance: ASPIRIN
     Indication: Coronary artery disease
     Dosage: 100 MG, QD
     Route: 048
     Dates: start: 20250319, end: 20250401
  4. ASPIRIN [Suspect]
     Active Substance: ASPIRIN
     Indication: Cerebral infarction
  5. RIVAROXABAN [Suspect]
     Active Substance: RIVAROXABAN
     Indication: Coronary artery disease
     Dosage: 20 MG, QD
     Route: 048
     Dates: start: 20250319, end: 20250401
  6. RIVAROXABAN [Suspect]
     Active Substance: RIVAROXABAN
     Indication: Cerebral infarction

REACTIONS (6)
  - Hypovolaemic shock [Recovering/Resolving]
  - Upper gastrointestinal haemorrhage [Recovering/Resolving]
  - Somnolence [Recovering/Resolving]
  - Melaena [Recovered/Resolved]
  - Asthenia [Recovering/Resolving]
  - Peptic ulcer haemorrhage [Recovering/Resolving]

NARRATIVE: CASE EVENT DATE: 20250402
